FAERS Safety Report 6405846-6 (Version None)
Quarter: 2009Q4

REPORT INFORMATION
  Report Type: 
  Country: None (occurrence: None)
  Receive Date: 20091019
  Receipt Date: 20091013
  Transmission Date: 20100525
  Serious: Yes (Hospitalization, Disabling, Other)
  Sender: FDA-Public Use
  Company Number: US-MERCK-0901USA00884

PATIENT
  Age: 73 Year
  Sex: Female
  Weight: 50 kg

DRUGS (5)
  1. FOSAMAX [Suspect]
     Indication: OSTEOPOROSIS
     Route: 048
     Dates: start: 20000101, end: 20060215
  2. FOSAMAX [Suspect]
     Route: 048
     Dates: start: 20070418, end: 20071217
  3. FOSAMAX [Suspect]
     Route: 048
     Dates: start: 19980101, end: 19980401
  4. FOSAMAX [Suspect]
     Route: 048
     Dates: start: 19990901, end: 20010501
  5. BONIVA [Suspect]
     Route: 065
     Dates: start: 20060215, end: 20071201

REACTIONS (33)
  - ARTERIOSCLEROSIS [None]
  - CARDIAC VALVE DISEASE [None]
  - CHEST PAIN [None]
  - CHOLELITHIASIS [None]
  - COGNITIVE DISORDER [None]
  - DEAFNESS NEUROSENSORY [None]
  - DEPRESSION [None]
  - DIABETIC RETINOPATHY [None]
  - DIARRHOEA [None]
  - EXCORIATION [None]
  - FATIGUE [None]
  - FIBROCYSTIC BREAST DISEASE [None]
  - HAEMORRHAGE [None]
  - HYPERCHOLESTEROLAEMIA [None]
  - HYPERLIPIDAEMIA [None]
  - HYPERTENSION [None]
  - INSOMNIA [None]
  - MUSCLE SPASMS [None]
  - NASOPHARYNGITIS [None]
  - NEUROGENIC BLADDER [None]
  - NEUROPATHY PERIPHERAL [None]
  - ORAL DISORDER [None]
  - ORAL TORUS [None]
  - OSTEOARTHRITIS [None]
  - OSTEONECROSIS [None]
  - PAIN [None]
  - RASH [None]
  - RHINITIS PERENNIAL [None]
  - SACROILIITIS [None]
  - SLEEP DISORDER [None]
  - TINNITUS [None]
  - UTERINE LEIOMYOMA [None]
  - UTERINE STENOSIS [None]
